FAERS Safety Report 12573480 (Version 3)
Quarter: 2016Q4

REPORT INFORMATION
  Report Type: Spontaneous
  Country: US (occurrence: US)
  Receive Date: 20160720
  Receipt Date: 20161027
  Transmission Date: 20170207
  Serious: No
  Sender: FDA-Public Use
  Company Number: US-PFIZER INC-2016317519

PATIENT
  Age: 65 Year
  Sex: Male
  Weight: 84 kg

DRUGS (17)
  1. AMARYL [Concomitant]
     Active Substance: GLIMEPIRIDE
     Dosage: 1 MG, 3X/DAY
     Route: 048
  2. GLUCOPHAGE [Concomitant]
     Active Substance: METFORMIN HYDROCHLORIDE
     Dosage: 850 MG, 3X/DAY, (WITH MEALS)
     Route: 048
  3. LETAIRIS [Concomitant]
     Active Substance: AMBRISENTAN
     Indication: PULMONARY ARTERIAL HYPERTENSION
     Dosage: 10 MG, 1X/DAY
     Route: 048
     Dates: start: 2013
  4. NORVASC [Concomitant]
     Active Substance: AMLODIPINE BESYLATE
     Dosage: 5 MG TABLET TAKE 1 TAB BY MOUTH DAILY
     Route: 048
  5. REVATIO [Suspect]
     Active Substance: SILDENAFIL CITRATE
     Indication: PULMONARY ARTERIAL HYPERTENSION
     Dosage: 20 MG, 1X/DAY
     Dates: start: 2011
  6. LETAIRIS [Concomitant]
     Active Substance: AMBRISENTAN
     Dosage: UNK
     Dates: start: 201306
  7. TENORMIN [Concomitant]
     Active Substance: ATENOLOL
     Dosage: 25 MG TABLET TAKE 2 TABLETS BY MOUTH 2 TIMES DAILY
     Route: 048
  8. AVAPRO [Concomitant]
     Active Substance: IRBESARTAN
     Dosage: 1/2 TABLET ONCE DAILY
     Route: 048
  9. DOXYCYCLINE. [Concomitant]
     Active Substance: DOXYCYCLINE
  10. TYVASO [Concomitant]
     Active Substance: TREPROSTINIL
     Indication: PULMONARY HYPERTENSION
  11. KENALOG [Concomitant]
     Active Substance: TRIAMCINOLONE ACETONIDE
     Dosage: UNK , APPLY 3 TIMES DAILY
     Route: 061
  12. REVATIO [Suspect]
     Active Substance: SILDENAFIL CITRATE
     Indication: PULMONARY ARTERIAL HYPERTENSION
     Dosage: 20 MG, 3X/DAY
     Route: 048
  13. TYVASO [Concomitant]
     Active Substance: TREPROSTINIL
     Indication: HYPOTENSION
     Dosage: 4X/DAY
     Route: 055
     Dates: start: 201501
  14. LASIX [Concomitant]
     Active Substance: FUROSEMIDE
     Dosage: 3 TABLETS BY MOUTH DAILY (EVERY 24 HOURS)
     Route: 048
  15. LIDEX [Concomitant]
     Active Substance: FLUOCINONIDE
     Dosage: APPLY TOPICALLY TWO TIMES DAILY AS NEEDED, FOR USE ON ARMS AND HANDS
     Route: 061
  16. CAUMADIN [Concomitant]
     Active Substance: WARFARIN SODIUM
     Dosage: 1-1.5 TABLETS BY MOUTH DAILY (EVERY 24 HOURS). ADJUST DOSE PER INR VALUE AND INSTRUCTIONS
     Route: 048
  17. METFORMIN [Concomitant]
     Active Substance: METFORMIN HYDROCHLORIDE
     Dosage: UNK
     Dates: start: 200701

REACTIONS (1)
  - Nasopharyngitis [Recovered/Resolved]

NARRATIVE: CASE EVENT DATE: 20160616
